FAERS Safety Report 24209591 (Version 1)
Quarter: 2024Q3

REPORT INFORMATION
  Report Type: Spontaneous
  Country: IT (occurrence: IT)
  Receive Date: 20240814
  Receipt Date: 20240814
  Transmission Date: 20241017
  Serious: Yes (Death)
  Sender: AMGEN
  Company Number: IT-AMGEN-ITASP2024159316

PATIENT

DRUGS (3)
  1. ECULIZUMAB [Suspect]
     Active Substance: ECULIZUMAB
     Indication: Myasthenia gravis
     Dosage: 900 MILLIGRAM, QWK (FOUR WEEKLY AND CONSECUTIVE DOSES)
     Route: 042
  2. ECULIZUMAB [Suspect]
     Active Substance: ECULIZUMAB
     Dosage: 1200 MILLIGRAM, QWK (ONE WEEK LATER BY ONE DOSE)
     Route: 042
  3. ECULIZUMAB [Suspect]
     Active Substance: ECULIZUMAB
     Dosage: 1200 MILLIGRAM, Q2WK (EVERY 14 DAYS)
     Route: 042

REACTIONS (2)
  - Pneumonia [Fatal]
  - Off label use [Unknown]
